FAERS Safety Report 14615117 (Version 1)
Quarter: 2018Q1

REPORT INFORMATION
  Report Type: Spontaneous
  Country: CN (occurrence: CN)
  Receive Date: 20180308
  Receipt Date: 20180308
  Transmission Date: 20180509
  Serious: Yes (Hospitalization, Other)
  Sender: FDA-Public Use
  Company Number: CN-PFIZER INC-2018092133

PATIENT
  Age: 60 Year
  Sex: Male
  Weight: 62 kg

DRUGS (9)
  1. CEFMINOX SODIUM [Suspect]
     Active Substance: CEFMINOX SODIUM
     Indication: INFECTION
  2. CEFMINOX SODIUM [Suspect]
     Active Substance: CEFMINOX SODIUM
     Indication: COUGH
     Dosage: 1.0 G, 2X/DAY (BID)
     Route: 041
     Dates: start: 20171225, end: 20171229
  3. CEFMINOX SODIUM [Suspect]
     Active Substance: CEFMINOX SODIUM
     Indication: PRODUCTIVE COUGH
  4. VINPOCETINE [Suspect]
     Active Substance: VINPOCETINE
     Indication: VASODILATION PROCEDURE
     Dosage: 30 MG, 1X/DAY (QD)
     Route: 041
     Dates: start: 20171218, end: 20171229
  5. SODIUM CHLORIDE. [Concomitant]
     Active Substance: SODIUM CHLORIDE
     Indication: VEHICLE SOLUTION USE
     Dosage: 100 ML, 2X/DAY (BID)
     Route: 041
     Dates: start: 20171225, end: 20171229
  6. PREGABALIN. [Suspect]
     Active Substance: PREGABALIN
     Indication: FACIAL PARALYSIS
     Dosage: 75 MG, 2X/DAY (BID)
     Route: 048
     Dates: start: 20171218, end: 20171229
  7. VALACICLOVIR HYDROCHLORIDE [Concomitant]
     Active Substance: VALACYCLOVIR HYDROCHLORIDE
     Indication: FACIAL PARALYSIS
     Dosage: 0.3 G, 2X/DAY (BID)
     Route: 048
     Dates: start: 20171218, end: 20171221
  8. LIPITOR [Suspect]
     Active Substance: ATORVASTATIN CALCIUM
     Indication: PLAQUE SHIFT
     Dosage: 20 MG, 1X/DAY (QD)
     Route: 048
     Dates: start: 20171221, end: 20171229
  9. SODIUM CHLORIDE. [Concomitant]
     Active Substance: SODIUM CHLORIDE
     Indication: VEHICLE SOLUTION USE
     Dosage: 500 ML, 1X/DAY (QD)
     Route: 041
     Dates: start: 20171218, end: 20171229

REACTIONS (1)
  - Erythema multiforme [Recovering/Resolving]

NARRATIVE: CASE EVENT DATE: 20180103
